FAERS Safety Report 9931472 (Version 1)
Quarter: 2014Q1

REPORT INFORMATION
  Report Type: Report from Study
  Country: US (occurrence: US)
  Receive Date: 20140228
  Receipt Date: 20140228
  Transmission Date: 20141002
  Serious: Yes (Other)
  Sender: FDA-Public Use
  Company Number: US-ROCHE-1355188

PATIENT
  Sex: Female
  Weight: 34 kg

DRUGS (2)
  1. NUTROPIN AQ [Suspect]
     Indication: BODY HEIGHT BELOW NORMAL
     Route: 058
     Dates: end: 20130710
  2. NUTROPIN AQ [Suspect]
     Route: 058
     Dates: start: 20130710

REACTIONS (2)
  - Delayed puberty [Unknown]
  - Drug dose omission [Unknown]
